FAERS Safety Report 4852817-7 (Version None)
Quarter: 2005Q4

REPORT INFORMATION
  Report Type: 
  Country: None (occurrence: None)
  Receive Date: 20051209
  Receipt Date: 20051124
  Transmission Date: 20060501
  Serious: Yes (Other)
  Sender: FDA-Public Use
  Company Number: 034-1008-990006

PATIENT
  Age: 19 Year
  Sex: Male
  Weight: 98.6 kg

DRUGS (4)
  1. PREGABALIN (PREGABALIN) [Suspect]
     Indication: PARTIAL SEIZURES
     Dosage: 150 MG (DAILY), ORAL
     Route: 048
     Dates: start: 19990921
  2. LAMOTRIGINE [Concomitant]
  3. TIAGABINE HCL [Concomitant]
  4. METOCLOPRAMIDE [Concomitant]

REACTIONS (3)
  - GASTROENTERITIS VIRAL [None]
  - NYSTAGMUS [None]
  - OSCILLOPSIA [None]
